FAERS Safety Report 16806938 (Version 1)
Quarter: 2019Q3

REPORT INFORMATION
  Report Type: Spontaneous
  Country: US (occurrence: US)
  Receive Date: 20190913
  Receipt Date: 20190913
  Transmission Date: 20191005
  Serious: No
  Sender: FDA-Public Use
  Company Number: US-INCYTE CORPORATION-2019IN009047

PATIENT

DRUGS (1)
  1. JAKAFI [Suspect]
     Active Substance: RUXOLITINIB
     Indication: DISEASE SUSCEPTIBILITY
     Dosage: 10 MILLIGRAM, QD
     Route: 048
     Dates: start: 20190723

REACTIONS (2)
  - Off label use [Unknown]
  - Fungal infection [Unknown]
